FAERS Safety Report 5552279-0 (Version None)
Quarter: 2007Q4

REPORT INFORMATION
  Report Type: 
  Country: None (occurrence: None)
  Receive Date: 20071210
  Receipt Date: 20071127
  Transmission Date: 20080405
  Serious: Yes (Other)
  Sender: FDA-Public Use
  Company Number: DSJ-2007-07195

PATIENT
  Age: 55 Year
  Sex: Male
  Weight: 59 kg

DRUGS (10)
  1. OLMESARTAN MEDOXOMIL [Suspect]
     Indication: HYPERTENSION
     Dosage: 40 MG (20 MG, 2 IN 1 D), PER ORAL
     Route: 048
  2. DOXAZOSIN MESYLATE [Suspect]
     Indication: HYPERTENSION
     Dosage: 8 MG (4 MG, 2 IN 1 D), PER ORAL
     Route: 048
  3. SEVOFLURANE (SEVOFLURANE) (SEVOFLURANE) [Concomitant]
  4. PROPOFOL (PROPOFOL) (INJECTION) (PROPOFOL) [Concomitant]
  5. VECURONIUM BROMIDE (VECURONIUM BROMIDE) (INJECTION) (VECURONIUM BROMID [Concomitant]
  6. NITROUS OXIDE (NITROUS OXIDE) (NITROUS OXIDE) [Concomitant]
  7. OXYGEN (OXYGEN) (OXYGEN) [Concomitant]
  8. BREDININ (MIZORIBINE) (MIZORIBINE) [Concomitant]
  9. PREDNISOLONE [Concomitant]
  10. LANSOPRAZOLE [Concomitant]

REACTIONS (2)
  - DRUG INTERACTION [None]
  - HYPOTENSION [None]
